FAERS Safety Report 12978529 (Version 1)
Quarter: 2016Q4

REPORT INFORMATION
  Report Type: Spontaneous
  Country: US (occurrence: US)
  Receive Date: 20161123
  Receipt Date: 20161123
  Transmission Date: 20170207
  Serious: Yes (Hospitalization)
  Sender: FDA-Public Use
  Company Number: None

PATIENT
  Age: 69 Year
  Sex: Female

DRUGS (5)
  1. TOBRADEX [Concomitant]
     Active Substance: DEXAMETHASONE\TOBRAMYCIN
  2. VANCOMYCIN [Concomitant]
     Active Substance: VANCOMYCIN
  3. SENSIPAR [Suspect]
     Active Substance: CINACALCET HYDROCHLORIDE
     Indication: HYPERPARATHYROIDISM SECONDARY
     Route: 048
     Dates: start: 201404
  4. PREDNISONE. [Concomitant]
     Active Substance: PREDNISONE
  5. VITAMIN D3 [Concomitant]
     Active Substance: CHOLECALCIFEROL

REACTIONS (1)
  - Toe amputation [None]

NARRATIVE: CASE EVENT DATE: 201611
